FAERS Safety Report 7991031-3 (Version None)
Quarter: 2011Q4

REPORT INFORMATION
  Report Type: 
  Country: None (occurrence: None)
  Receive Date: 20111219
  Receipt Date: 20111212
  Transmission Date: 20120403
  Serious: Yes (Death, Hospitalization)
  Sender: FDA-Public Use
  Company Number: DE-ROCHE-1022092

PATIENT
  Sex: Male
  Weight: 82 kg

DRUGS (2)
  1. CYCLOSPORINE [Suspect]
     Indication: LIVER TRANSPLANT
     Route: 048
     Dates: start: 20070626, end: 20081209
  2. MYCOPHENOLATE MOFETIL (CELLCEPT) [Suspect]
     Indication: LIVER TRANSPLANT
     Dates: start: 20070626, end: 20090206

REACTIONS (1)
  - HEPATIC NEOPLASM MALIGNANT RECURRENT [None]
